FAERS Safety Report 8608273 (Version 2)
Quarter: 2012Q4

REPORT INFORMATION
  Report Type: 
  Country: US (occurrence: US)
  Receive Date: 20120611
  Receipt Date: 20121126
  Transmission Date: 20130627
  Serious: Yes (Other)
  Sender: FDA-Public Use
  Company Number: PHEH2012US006263

PATIENT
  Age: 35 Year
  Sex: Male
  Weight: 54.42 kg

DRUGS (10)
  1. GILENYA [Suspect]
     Indication: MULTIPLE SCLEROSIS
     Dosage: 1 DF, QD
     Route: 048
     Dates: start: 20120309
  2. GILENYA [Suspect]
     Dosage: 1 DF, QOD
     Route: 048
  3. GILENYA [Suspect]
     Dosage: 0.5 mg, QD
     Route: 048
  4. FAMPRIDINE [Concomitant]
  5. NUVIGIL [Concomitant]
  6. MULTIVITAMINS [Concomitant]
  7. CENTRUM [Concomitant]
     Dosage: UNK UKN, UNK
  8. VITAMIN D [Concomitant]
     Dosage: 5000 U, UNK
  9. MODAFINIL [Concomitant]
     Dosage: UNK UKN, UNK
  10. CIALIS [Concomitant]
     Dosage: 5 mg, UNK

REACTIONS (11)
  - Presyncope [Unknown]
  - Chest discomfort [Not Recovered/Not Resolved]
  - Chest pain [Not Recovered/Not Resolved]
  - Movement disorder [Not Recovered/Not Resolved]
  - Multiple sclerosis relapse [Recovering/Resolving]
  - Visual impairment [Recovering/Resolving]
  - Heart rate decreased [Not Recovered/Not Resolved]
  - Dyspnoea [Not Recovered/Not Resolved]
  - Asthenia [Not Recovered/Not Resolved]
  - Dizziness [Unknown]
  - Inappropriate schedule of drug administration [Unknown]
